FAERS Safety Report 11867125 (Version 2)
Quarter: 2016Q1

REPORT INFORMATION
  Report Type: Spontaneous
  Country: US (occurrence: US)
  Receive Date: 20151224
  Receipt Date: 20160122
  Transmission Date: 20160526
  Serious: Yes (Other)
  Sender: FDA-Public Use
  Company Number: US-SUN PHARMACEUTICAL INDUSTRIES LTD-2015US-108577

PATIENT
  Age: 24 Year
  Sex: Female

DRUGS (1)
  1. ACETAMINOPHEN. [Suspect]
     Active Substance: ACETAMINOPHEN
     Indication: PRODUCT USED FOR UNKNOWN INDICATION
     Dosage: UNK
     Route: 045

REACTIONS (7)
  - Nasal septum perforation [Unknown]
  - Palatal disorder [Unknown]
  - Epiglottitis [Unknown]
  - Pharyngitis [Unknown]
  - Drug abuse [Unknown]
  - Uvulitis [Unknown]
  - Odynophagia [Unknown]
